FAERS Safety Report 19360591 (Version 1)
Quarter: 2021Q2

REPORT INFORMATION
  Report Type: Spontaneous
  Country: CN (occurrence: CN)
  Receive Date: 20210601
  Receipt Date: 20210601
  Transmission Date: 20210717
  Serious: Yes (Hospitalization)
  Sender: FDA-Public Use
  Company Number: CN-BAYER-2021-148145

PATIENT
  Age: 15 Year
  Sex: Male
  Weight: 105 kg

DRUGS (1)
  1. CLARITYNE 10 MG [Suspect]
     Active Substance: LORATADINE
     Indication: URTICARIA CHRONIC
     Dosage: 6 DF, QD
     Route: 048
     Dates: start: 20210501, end: 20210510

REACTIONS (5)
  - Renal failure [Recovering/Resolving]
  - Abdominal pain [Recovering/Resolving]
  - Overdose [None]
  - Pain [Recovering/Resolving]
  - Abdominal distension [Recovering/Resolving]

NARRATIVE: CASE EVENT DATE: 20210501
